FAERS Safety Report 11537506 (Version 1)
Quarter: 2015Q3

REPORT INFORMATION
  Report Type: Spontaneous
  Country: US (occurrence: US)
  Receive Date: 20150922
  Receipt Date: 20150922
  Transmission Date: 20151125
  Serious: Yes (Death, Hospitalization)
  Sender: FDA-Public Use
  Company Number: GXBR2015US002091

PATIENT
  Age: 79 Year
  Sex: Male

DRUGS (2)
  1. AMIODARONE HYDROCHLORIDE. [Suspect]
     Active Substance: AMIODARONE HYDROCHLORIDE
     Indication: ATRIAL FIBRILLATION
     Dosage: 400 MG, QD
     Route: 048
     Dates: start: 20130702, end: 20130808
  2. AMIODARONE HYDROCHLORIDE. [Suspect]
     Active Substance: AMIODARONE HYDROCHLORIDE
     Dosage: 200 MG, QD
     Route: 048
     Dates: start: 20130809, end: 20131017

REACTIONS (25)
  - Feeding disorder [Fatal]
  - Asthenia [Fatal]
  - Irritability [Not Recovered/Not Resolved]
  - Depression [Not Recovered/Not Resolved]
  - Aphasia [Fatal]
  - Fall [Not Recovered/Not Resolved]
  - Dizziness [Not Recovered/Not Resolved]
  - Pulmonary fibrosis [Fatal]
  - Dysphagia [Fatal]
  - Wheezing [Fatal]
  - Muscular weakness [Fatal]
  - Malaise [Fatal]
  - Disturbance in attention [Not Recovered/Not Resolved]
  - Lung disorder [Fatal]
  - Fatigue [Fatal]
  - Restlessness [Not Recovered/Not Resolved]
  - Decreased appetite [Fatal]
  - Nervousness [Not Recovered/Not Resolved]
  - Muscle atrophy [Not Recovered/Not Resolved]
  - Respiratory arrest [Fatal]
  - Dyspnoea [Fatal]
  - Cough [Fatal]
  - Weight decreased [Fatal]
  - Balance disorder [Not Recovered/Not Resolved]
  - Off label use [Not Recovered/Not Resolved]

NARRATIVE: CASE EVENT DATE: 2013
